FAERS Safety Report 13652142 (Version 1)
Quarter: 2017Q2

REPORT INFORMATION
  Report Type: Report from Study
  Country: BE (occurrence: BE)
  Receive Date: 20170614
  Receipt Date: 20170614
  Transmission Date: 20170830
  Serious: Yes (Hospitalization)
  Sender: FDA-Public Use
  Company Number: BE-AMGEN-BELCT2011035744

PATIENT
  Age: 63 Year
  Sex: Female
  Weight: 62 kg

DRUGS (7)
  1. PEGYLATED LIPOSOMAL DOXORUBICIN HYDROCHLORIDE [Concomitant]
     Active Substance: DOXORUBICIN HYDROCHLORIDE
     Dosage: 83 MG, UNK
     Route: 042
     Dates: start: 20110629, end: 20110629
  2. ALDACTONE [Concomitant]
     Active Substance: SPIRONOLACTONE
     Dosage: 25 MG, UNK
     Route: 048
     Dates: start: 20110710, end: 20120108
  3. LOORTAN [Concomitant]
     Dosage: 50 MG, UNK
     Route: 048
     Dates: start: 20110415, end: 20110710
  4. AMG 386 [Suspect]
     Active Substance: TREBANANIB
     Indication: OVARIAN CANCER
     Dosage: UNK
     Route: 042
     Dates: start: 20110629
  5. DOXORUBICIN [Concomitant]
     Active Substance: DOXORUBICIN
     Dosage: 50 MG/M2, UNK
     Dates: start: 20110629
  6. XANAX [Concomitant]
     Active Substance: ALPRAZOLAM
     Dosage: 0.5 UNK, UNK
     Route: 048
  7. REDOMEX [Concomitant]
     Active Substance: AMITRIPTYLINE HYDROCHLORIDE
     Dosage: 25 MG, UNK
     Route: 048
     Dates: start: 1971

REACTIONS (2)
  - Pleural effusion [Recovered/Resolved]
  - Bacteraemia [Recovered/Resolved]

NARRATIVE: CASE EVENT DATE: 20110712
